FAERS Safety Report 13643721 (Version 2)
Quarter: 2017Q3

REPORT INFORMATION
  Report Type: Spontaneous
  Country: JP (occurrence: JP)
  Receive Date: 20170612
  Receipt Date: 20170706
  Transmission Date: 20171127
  Serious: Yes (Death, Life-Threatening, Hospitalization, Other)
  Sender: FDA-Public Use
  Company Number: JP-PFIZER INC-2017248424

PATIENT
  Age: 11 Year
  Sex: Male
  Weight: 38 kg

DRUGS (6)
  1. SINGULAIR [Suspect]
     Active Substance: MONTELUKAST SODIUM
     Dosage: 5 MG, 1X/DAY
     Route: 048
     Dates: start: 20170529
  2. NASONEX [Suspect]
     Active Substance: MOMETASONE FUROATE
     Dosage: 1 DF, 1X/DAY
     Route: 045
     Dates: start: 20170529
  3. TALION [Suspect]
     Active Substance: BEPOTASTINE
     Dosage: 10 MG, 2X/DAY
     Route: 048
     Dates: start: 20170529
  4. AZUNOL [Suspect]
     Active Substance: SODIUM GUALENATE
     Dosage: UNK UNK, 3X/DAY
     Route: 048
     Dates: start: 20170529
  5. BIOFERMIN R [Suspect]
     Active Substance: BACILLUS SUBTILIS\LACTOBACILLUS ACIDOPHILUS\STREPTOCOCCUS FAECAIS
     Dosage: 1 DF, 3X/DAY
     Route: 048
     Dates: start: 20170529
  6. ZITHROMAC 100MG [Suspect]
     Active Substance: AZITHROMYCIN DIHYDRATE
     Dosage: 400 MG, 1X/DAY
     Route: 048
     Dates: start: 20170529

REACTIONS (1)
  - Near drowning [Fatal]

NARRATIVE: CASE EVENT DATE: 20170601
